FAERS Safety Report 23543191 (Version 1)
Quarter: 2024Q1

REPORT INFORMATION
  Report Type: Report from Study
  Country: MX (occurrence: MX)
  Receive Date: 20240220
  Receipt Date: 20240220
  Transmission Date: 20240410
  Serious: Yes (Other)
  Sender: FDA-Public Use
  Company Number: MX-002147023-NVSC2024MX034920

PATIENT
  Age: 71 Year
  Sex: Male
  Weight: 89 kg

DRUGS (1)
  1. EXFORGE HCT [Suspect]
     Active Substance: AMLODIPINE BESYLATE\HYDROCHLOROTHIAZIDE\VALSARTAN
     Indication: Hypertension
     Dosage: 0.5 DOSAGE FORM, BID ((5/160/12 .5 MG)HALF IN THE MORNING AND HALF IN THE NIGHT)
     Route: 048
     Dates: start: 20231126, end: 20240108

REACTIONS (2)
  - Nephropathy toxic [Unknown]
  - Off label use [Unknown]

NARRATIVE: CASE EVENT DATE: 20231126
